FAERS Safety Report 6667682-5 (Version None)
Quarter: 2010Q1

REPORT INFORMATION
  Report Type: 
  Country: None (occurrence: None)
  Receive Date: 20100331
  Receipt Date: 20100316
  Transmission Date: 20100710
  Serious: Yes (Hospitalization)
  Sender: FDA-Public Use
  Company Number: CV20100132

PATIENT
  Age: 3 Month
  Sex: Male

DRUGS (4)
  1. FUROSEMIDE [Suspect]
     Indication: CARDIAC FAILURE CONGESTIVE
     Dosage: 1 MG/KG
  2. DIGOXIN [Concomitant]
  3. SPIRONOLACTONE [Concomitant]
  4. ENALAPRIL MALEATE [Concomitant]

REACTIONS (5)
  - CARDIAC MURMUR [None]
  - DIARRHOEA [None]
  - DRUG INTERACTION [None]
  - GENERALISED OEDEMA [None]
  - RENAL FAILURE ACUTE [None]
